FAERS Safety Report 13598824 (Version 6)
Quarter: 2020Q2

REPORT INFORMATION
  Report Type: Report from Study
  Country: DE (occurrence: DE)
  Receive Date: 20170531
  Receipt Date: 20200616
  Transmission Date: 20200713
  Serious: Yes (Hospitalization)
  Sender: FDA-Public Use
  Company Number: DE-BRISTOL-MYERS SQUIBB COMPANY-BMS-2017-045936

PATIENT
  Age: 76 Year
  Sex: Female
  Weight: 86.9 kg

DRUGS (4)
  1. IPILIMUMAB [Suspect]
     Active Substance: IPILIMUMAB
     Indication: MALIGNANT MELANOMA
     Dosage: 1 DF: 260 UNIT NOS
     Route: 042
     Dates: start: 20170421
  2. NIVOLUMAB [Suspect]
     Active Substance: NIVOLUMAB
     Indication: MALIGNANT MELANOMA
     Dosage: 1 DF: 86.9 UNIT NOS
     Route: 042
     Dates: start: 20170421
  3. ECURAL [Concomitant]
     Active Substance: MOMETASONE
     Indication: DRUG ERUPTION
     Dosage: UNK
     Route: 061
     Dates: start: 20170430
  4. OPTIDERM [DEXPANTHENOL;HYDROCORTISONE] [Concomitant]
     Indication: DRUG ERUPTION
     Dosage: UNK
     Route: 061
     Dates: start: 20170430

REACTIONS (2)
  - Diarrhoea [Recovered/Resolved]
  - Supraventricular tachycardia [Recovered/Resolved]

NARRATIVE: CASE EVENT DATE: 20170512
